FAERS Safety Report 10543200 (Version 2)
Quarter: 2014Q4

REPORT INFORMATION
  Report Type: Spontaneous
  Country: US (occurrence: None)
  Receive Date: 20141010
  Receipt Date: 20141205
  Transmission Date: 20150529
  Serious: Yes (Hospitalization, Other)
  Sender: FDA-Public Use
  Company Number: 163-POMAL-14080290

PATIENT
  Age: 69 Year
  Sex: Male
  Weight: 74.84 kg

DRUGS (27)
  1. METHADONE [Concomitant]
     Active Substance: METHADONE HYDROCHLORIDE
  2. POTASSIUM CHLORIDE (POTASSIUM CHLORIDE) [Concomitant]
     Active Substance: POTASSIUM CHLORIDE
  3. MAGNESIUM SULFATE. [Concomitant]
     Active Substance: MAGNESIUM SULFATE
  4. KAY CIEL (POTASSIULM CHLORIDE) [Concomitant]
  5. DECADRON [Concomitant]
     Active Substance: DEXAMETHASONE
  6. KLOR-CON (POTASSIUM CHLORIDE) [Concomitant]
  7. COLACE [Concomitant]
     Active Substance: DOCUSATE SODIUM
  8. ANTICOAGULANT SODIUM CITRATE (ANTICOAGULANT SODIUIM CITRATE) [Concomitant]
  9. ALBUMIN HUMAN (ALBUMIN HUMAN) [Concomitant]
  10. HEPARIN [Concomitant]
     Active Substance: HEPARIN SODIUM
  11. MIACALCIN (CALCITONIN, SALMON) [Concomitant]
  12. LASIX [Concomitant]
     Active Substance: FUROSEMIDE
  13. MYCOSTATIN (NYSTATIN) [Concomitant]
  14. NORCO (VICODIN) [Concomitant]
  15. SODIUM CITRATE (SODIUM CITRATE) [Concomitant]
  16. DOLOPHINE (METHADONE HYDROCHLORIDE) [Concomitant]
  17. GLYCOLAX (MACROGOL) [Concomitant]
  18. ASPIRIN. [Concomitant]
     Active Substance: ASPIRIN
  19. SODIUM CHLORIDE (SODIUM CHLORIDE) [Concomitant]
     Active Substance: SODIUM CHLORIDE
  20. CALCIUM GLUCONATE (CALCIUM GLUCONATE) [Concomitant]
     Active Substance: CALCIUM GLUCONATE
  21. PLASMA (PLASMA) [Concomitant]
  22. LOPRESSOR [Concomitant]
     Active Substance: METOPROLOL TARTRATE
  23. POMALYST [Suspect]
     Active Substance: POMALIDOMIDE
     Indication: PLASMA CELL MYELOMA
     Route: 048
     Dates: start: 201403
  24. METOPROLOL (METOPROLOL) [Concomitant]
     Active Substance: METOPROLOL
  25. PACKED RED B LOOD CELLS (RED BLOOD CELLOS, CONCENTRATED) [Concomitant]
  26. MAG-OX [Concomitant]
  27. NICODERM CQ (NICOTINE) (POULTICE OR PATCH) [Concomitant]

REACTIONS (4)
  - Vomiting [None]
  - Hypercalcaemia [None]
  - Anaemia [None]
  - Acute kidney injury [None]

NARRATIVE: CASE EVENT DATE: 201403
